FAERS Safety Report 8011403-0 (Version None)
Quarter: 2011Q4

REPORT INFORMATION
  Report Type: 
  Country: None (occurrence: None)
  Receive Date: 20111228
  Receipt Date: 20111221
  Transmission Date: 20120403
  Serious: No
  Sender: FDA-Public Use
  Company Number: US-PFIZER INC-2011310344

PATIENT
  Sex: Female

DRUGS (10)
  1. LORATADINE AND PSEUDOEPHEDRINE SULFATE [Suspect]
     Dosage: UNK
  2. ZYRTEC [Suspect]
     Dosage: UNK
  3. FORMOTEROL FUMARATE [Suspect]
     Dosage: UNK
  4. ADVAIR DISKUS 100/50 [Suspect]
     Dosage: UNK
  5. PREDNISONE [Suspect]
     Dosage: UNK
  6. ALLEGRA [Suspect]
     Dosage: UNK
  7. SINGULAIR [Suspect]
     Dosage: UNK
  8. PULMICORT [Suspect]
  9. ALBUTEROL [Concomitant]
     Dosage: UNK
  10. SYMBICORT [Suspect]

REACTIONS (6)
  - GASTRIC DISORDER [None]
  - DEPRESSION [None]
  - INSOMNIA [None]
  - ARTHRALGIA [None]
  - WEIGHT INCREASED [None]
  - DRUG INEFFECTIVE [None]
